FAERS Safety Report 7814321-3 (Version None)
Quarter: 2011Q4

REPORT INFORMATION
  Report Type: 
  Country: None (occurrence: None)
  Receive Date: 20111011
  Receipt Date: 20110930
  Transmission Date: 20120403
  Serious: No
  Sender: FDA-Public Use
  Company Number: 2011-01291

PATIENT
  Age: 59 Year
  Sex: Male
  Weight: 95.2554 kg

DRUGS (16)
  1. GREEN TEA [Concomitant]
  2. COQ10 [Concomitant]
  3. LYCOPENE [Concomitant]
  4. THISILYN [Concomitant]
  5. RESVERATOL [Concomitant]
  6. SELENIUM [Concomitant]
  7. POMEGRANATE [Concomitant]
  8. VITAMIN E [Concomitant]
  9. ASCORBIC ACID [Concomitant]
  10. VITAMIN D [Concomitant]
  11. MULTI-VITAMIN [Concomitant]
  12. SOY COMPLEX [Concomitant]
  13. LOVAZA [Concomitant]
  14. ZICAM COLD REMEDY GEL SWABS [Suspect]
     Dosage: 5X A DAY/MULTIPLE COLDS
     Dates: start: 20020101, end: 20100101
  15. GARLIC EXTRACT [Concomitant]
  16. FLECAINIDE ACETATE [Concomitant]

REACTIONS (1)
  - HYPOSMIA [None]
